FAERS Safety Report 7063185-7 (Version None)
Quarter: 2010Q4

REPORT INFORMATION
  Report Type: 
  Country: None (occurrence: None)
  Receive Date: 20101026
  Receipt Date: 20100512
  Transmission Date: 20110411
  Serious: No
  Sender: FDA-Public Use
  Company Number: US-PFIZER INC-2010029920

PATIENT
  Sex: Male
  Weight: 72.6 kg

DRUGS (3)
  1. LIPITOR [Suspect]
     Indication: BLOOD CHOLESTEROL INCREASED
     Dosage: 80 MG, 1X/DAY
     Route: 048
     Dates: start: 20060101
  2. ZETIA [Concomitant]
     Dosage: UNK
  3. LOTREL [Concomitant]
     Dosage: UNK

REACTIONS (1)
  - PAROSMIA [None]
